FAERS Safety Report 4796408-5 (Version None)
Quarter: 2005Q4

REPORT INFORMATION
  Report Type: 
  Country: None (occurrence: None)
  Receive Date: 20051011
  Receipt Date: 20041013
  Transmission Date: 20060501
  Serious: Yes (Hospitalization)
  Sender: FDA-Public Use
  Company Number: 04P-163-0277491-00

PATIENT
  Age: 49 Year
  Sex: Female

DRUGS (5)
  1. TRICOR [Suspect]
     Indication: BLOOD CHOLESTEROL INCREASED
     Dosage: 54 MG, 1 IN 1 D, PER ORAL
     Route: 048
     Dates: start: 20020101, end: 20041001
  2. METOPROLOL SUCCINATE [Concomitant]
  3. RANITIDINE HYDROCHLORIDE [Concomitant]
  4. LEVOTHYROXINE [Concomitant]
  5. PANTOPRAZOLE [Concomitant]

REACTIONS (5)
  - ABDOMINAL PAIN [None]
  - AMNESIA [None]
  - CHEST PAIN [None]
  - GAIT DISTURBANCE [None]
  - HEPATIC ENZYME INCREASED [None]
